FAERS Safety Report 7875235-6 (Version None)
Quarter: 2011Q4

REPORT INFORMATION
  Report Type: 
  Country: None (occurrence: None)
  Receive Date: 20111031
  Receipt Date: 20111026
  Transmission Date: 20120403
  Serious: Yes (Death, Other)
  Sender: FDA-Public Use
  Company Number: BR-SANOFI-AVENTIS-2011SA053219

PATIENT
  Sex: Male

DRUGS (5)
  1. OTHER ANTIINFLAMMATORY AGENTS IN COMB. [Concomitant]
  2. ANTIBIOTICS [Concomitant]
  3. JEVTANA KIT [Suspect]
     Indication: PROSTATE CANCER
  4. CORTICOSTEROIDS [Concomitant]
  5. METAMIZOLE [Concomitant]
     Indication: PAIN

REACTIONS (4)
  - ERYTHEMA MULTIFORME [None]
  - STEVENS-JOHNSON SYNDROME [None]
  - MULTI-ORGAN FAILURE [None]
  - SKIN LESION [None]
